FAERS Safety Report 8401805-2 (Version None)
Quarter: 2012Q2

REPORT INFORMATION
  Report Type: 
  Country: None (occurrence: None)
  Receive Date: 20120529
  Receipt Date: 19880826
  Transmission Date: 20120825
  Serious: Yes (Death, Other)
  Sender: FDA-Public Use
  Company Number: 004016

PATIENT
  Age: 73 Year
  Sex: Male

DRUGS (12)
  1. ACEBUTOLOL HCL [Concomitant]
  2. NIFEDIPINE [Concomitant]
  3. WARFARIN POTASSIUM (WARFARIN POTASSIUM) [Concomitant]
  4. PROBUCOL [Concomitant]
  5. CAPTOPRIL [Concomitant]
  6. GEFARNATE (GEFARNATE) [Concomitant]
  7. TRIMEBUTINE MALEATE (TRIMEBUTINE MALEATE) [Concomitant]
  8. PLETAL [Suspect]
     Dosage: 200 MG, DAILY DOSE, ORAL
     Route: 048
     Dates: start: 19880607, end: 19880616
  9. DILTIAZEM HYDROCHLORIDE [Concomitant]
  10. GUANFACINE HYDROCHLORIDE (GUANFACINE HYDROCHLORIDE) [Concomitant]
  11. TRIAZOLAM [Concomitant]
  12. NICORANDIL (NICORANDIL) [Concomitant]

REACTIONS (4)
  - MYOCARDIAL INFARCTION [None]
  - RENAL FAILURE [None]
  - GASTRIC HAEMORRHAGE [None]
  - CARDIAC FAILURE [None]
